FAERS Safety Report 21554709 (Version 1)
Quarter: 2022Q4

REPORT INFORMATION
  Report Type: Report from Study
  Country: BR (occurrence: BR)
  Receive Date: 20221104
  Receipt Date: 20221104
  Transmission Date: 20230112
  Serious: Yes (Other)
  Sender: FDA-Public Use
  Company Number: BR-JNJFOC-20221102299

PATIENT
  Sex: Male
  Weight: 106 kg

DRUGS (1)
  1. INFLIXIMAB [Suspect]
     Active Substance: INFLIXIMAB
     Indication: Crohn^s disease
     Route: 041
     Dates: start: 20220511

REACTIONS (2)
  - Neoplasm [Not Recovered/Not Resolved]
  - Anal neoplasm [Not Recovered/Not Resolved]
